FAERS Safety Report 11402979 (Version 1)
Quarter: 2015Q3

REPORT INFORMATION
  Report Type: Spontaneous
  Country: US (occurrence: US)
  Receive Date: 20150821
  Receipt Date: 20150821
  Transmission Date: 20151125
  Serious: No
  Sender: FDA-Public Use
  Company Number: US-ROCHE-1297202

PATIENT
  Sex: Female

DRUGS (7)
  1. PEGASYS [Suspect]
     Active Substance: PEGINTERFERON ALFA-2A
     Indication: HEPATITIS B
  2. PEGASYS [Suspect]
     Active Substance: PEGINTERFERON ALFA-2A
     Indication: HEPATITIS C
     Route: 058
  3. RIBASPHERE RIBAPAK [Suspect]
     Active Substance: RIBAVIRIN
     Indication: HEPATITIS C
     Dosage: 600MG IN AM AND 400MG IN PM
     Route: 048
  4. INCIVEK [Suspect]
     Active Substance: TELAPREVIR
     Indication: HEPATITIS C
     Dosage: EVERY 7-9 HOURS
     Route: 048
  5. MILK THISTLE [Concomitant]
     Active Substance: MILK THISTLE
  6. MELATONIN [Concomitant]
     Active Substance: MELATONIN
  7. ZZZQUIL NIGHTTIME SLEEP-AID [Concomitant]
     Active Substance: DIPHENHYDRAMINE HYDROCHLORIDE

REACTIONS (4)
  - Drug dose omission [Unknown]
  - Abdominal discomfort [Unknown]
  - Pruritus [Unknown]
  - Anaemia [Unknown]
